FAERS Safety Report 21513652 (Version 1)
Quarter: 2022Q4

REPORT INFORMATION
  Report Type: Report from Study
  Country: CA (occurrence: CA)
  Receive Date: 20221027
  Receipt Date: 20221027
  Transmission Date: 20230113
  Serious: Yes (Other)
  Sender: FDA-Public Use
  Company Number: CA-NOVARTISPH-NVSC2021CA283935

PATIENT
  Age: 63 Year
  Sex: Female

DRUGS (5)
  1. MAYZENT [Suspect]
     Active Substance: SIPONIMOD
     Indication: Secondary progressive multiple sclerosis
     Dosage: UNK
     Route: 048
     Dates: start: 20211206
  2. XIIDRA [Concomitant]
     Active Substance: LIFITEGRAST
     Indication: Product used for unknown indication
     Dosage: DROPS (SINCE 2 WEEKS)
     Route: 065
  3. HYDRASENSE [Concomitant]
     Indication: Product used for unknown indication
     Dosage: UNK (STARTED SINCE A MONTH AGO)
     Route: 065
  4. XALATAN [Concomitant]
     Active Substance: LATANOPROST
     Indication: Product used for unknown indication
     Dosage: UNK (STARTED SINCE A MONTH AGO)
     Route: 065
  5. SYSTANE (HYPROMELLOSE 2910 (4000 MPA.S)) [Concomitant]
     Active Substance: HYPROMELLOSE 2910 (4000 MPA.S)
     Indication: Product used for unknown indication
     Dosage: DROPS (STARTED SINCE A MONTH AGO)
     Route: 065

REACTIONS (13)
  - Multiple sclerosis relapse [Recovered/Resolved]
  - Cataract [Unknown]
  - Glaucoma [Unknown]
  - Decreased immune responsiveness [Unknown]
  - Stress [Unknown]
  - Malaise [Unknown]
  - Balance disorder [Unknown]
  - Dry eye [Unknown]
  - Vision blurred [Unknown]
  - Blood pressure systolic increased [Unknown]
  - Dizziness [Unknown]
  - White blood cell count decreased [Unknown]
  - Lymphocyte count decreased [Unknown]

NARRATIVE: CASE EVENT DATE: 20211208
